FAERS Safety Report 8793896 (Version 2)
Quarter: 2012Q4

REPORT INFORMATION
  Report Type: 
  Country: JP (occurrence: JP)
  Receive Date: 20120917
  Receipt Date: 20121112
  Transmission Date: 20130627
  Serious: Yes (Death)
  Sender: FDA-Public Use
  Company Number: JP-ELI_LILLY_AND_COMPANY-JP201209001527

PATIENT
  Age: 78 Year
  Sex: Female

DRUGS (7)
  1. FORTEO [Suspect]
     Indication: OSTEOPOROSIS
     Dosage: UNK
     Route: 058
     Dates: start: 20110607
  2. MAGNESIUM OXIDE [Concomitant]
  3. GLAKAY [Concomitant]
     Indication: OSTEOPOROSIS
     Dosage: 15 mg, UNK
     Route: 048
     Dates: start: 20100629, end: 20110606
  4. ROCALTROL [Concomitant]
     Indication: OSTEOPOROSIS
     Dosage: 0.5 ug, UNK
     Route: 048
     Dates: start: 20100629, end: 20110606
  5. FOSAMAC [Concomitant]
     Indication: OSTEOPOROSIS
     Dosage: 35 mg, UNK
     Route: 048
     Dates: start: 20100629, end: 20100823
  6. MINODRONIC ACID [Concomitant]
     Indication: OSTEOPOROSIS
     Dosage: 1 mg, UNK
     Route: 048
     Dates: start: 20100824, end: 20110606
  7. BONALON [Concomitant]
     Indication: OSTEOPOROSIS

REACTIONS (5)
  - Death [Fatal]
  - Thrombosis [Unknown]
  - Hypoaesthesia [Recovered/Resolved]
  - Oedema peripheral [Recovered/Resolved]
  - Palpitations [Unknown]
